FAERS Safety Report 24032620 (Version 2)
Quarter: 2024Q3

REPORT INFORMATION
  Report Type: Spontaneous
  Country: US (occurrence: US)
  Receive Date: 20240701
  Receipt Date: 20240725
  Transmission Date: 20241016
  Serious: Yes (Other)
  Sender: BRISTOL MYERS SQUIBB
  Company Number: US-BRISTOL-MYERS SQUIBB COMPANY-2024-102795

PATIENT
  Age: 76 Year
  Sex: Male
  Weight: 115.21 kg

DRUGS (2)
  1. REVLIMID [Suspect]
     Active Substance: LENALIDOMIDE
     Indication: Plasma cell myeloma
     Dosage: 3 WEEKS ON 1 WEEK OFF
     Route: 048
  2. REVLIMID [Suspect]
     Active Substance: LENALIDOMIDE
     Dosage: 3 WEEKS ON 1 WEEK OFF
     Route: 048

REACTIONS (2)
  - Pneumonia [Recovered/Resolved]
  - Constipation [Recovered/Resolved]
